FAERS Safety Report 11051942 (Version 5)
Quarter: 2015Q2

REPORT INFORMATION
  Report Type: Spontaneous
  Country: IT (occurrence: IT)
  Receive Date: 20150421
  Receipt Date: 20150508
  Transmission Date: 20150821
  Serious: Yes (Other)
  Sender: FDA-Public Use
  Company Number: IT-PFIZER INC-2015133299

PATIENT
  Age: 40 Year
  Sex: Male

DRUGS (6)
  1. HOMER [Suspect]
     Active Substance: AMOXICILLIN\CLAVULANATE POTASSIUM
     Dosage: 1 DF, SINGLE (875/125 MG)
     Route: 048
     Dates: start: 20150205, end: 20150205
  2. CITALOPRAM HYDROCHLORIDE [Suspect]
     Active Substance: CITALOPRAM HYDROCHLORIDE
     Dosage: 1 DF, SINGLE
     Route: 048
     Dates: start: 20150205
  3. PANTOPRAZOLE [Suspect]
     Active Substance: PANTOPRAZOLE SODIUM
     Dosage: 1 DF, SINGLE (QD)
     Route: 048
     Dates: start: 20150205, end: 20150205
  4. VALIUM [Suspect]
     Active Substance: DIAZEPAM
     Dosage: 1 GTT, UNK
     Route: 048
     Dates: start: 20150205, end: 20150205
  5. WELLBUTRIN [Suspect]
     Active Substance: BUPROPION HYDROCHLORIDE
     Dosage: 1 DF, SINGLE (150MG)
     Route: 048
     Dates: start: 20150205, end: 20150205
  6. VOLTAREN [Suspect]
     Active Substance: DICLOFENAC SODIUM
     Dosage: 1 DF, SINGLE
     Route: 048
     Dates: start: 20150205, end: 20150205

REACTIONS (3)
  - Depressed level of consciousness [Recovering/Resolving]
  - Suicide attempt [Recovering/Resolving]
  - Drug abuse [Unknown]

NARRATIVE: CASE EVENT DATE: 20150205
